FAERS Safety Report 9158590 (Version 1)
Quarter: 2013Q1

REPORT INFORMATION
  Report Type: Spontaneous
  Country: AR (occurrence: AR)
  Receive Date: 20130312
  Receipt Date: 20130312
  Transmission Date: 20140127
  Serious: Yes (Other)
  Sender: FDA-Public Use
  Company Number: AR-PFIZER INC-2013078920

PATIENT
  Age: 15 Year
  Sex: Male

DRUGS (1)
  1. GENOTROPIN [Suspect]
     Indication: FOETAL GROWTH RESTRICTION
     Dosage: 1.8 MG, 1X/DAY, 7X/WEEK
     Dates: start: 20101121

REACTIONS (5)
  - Ear infection [Unknown]
  - Tonsillitis [Unknown]
  - Pyrexia [Unknown]
  - Blood glucose increased [Unknown]
  - Fatigue [Unknown]
